FAERS Safety Report 7293247-0 (Version None)
Quarter: 2011Q1

REPORT INFORMATION
  Report Type: 
  Country: None (occurrence: None)
  Receive Date: 20110204
  Receipt Date: 20110107
  Transmission Date: 20110831
  Serious: Yes (Other)
  Sender: FDA-Public Use
  Company Number: 2011SP003948

PATIENT
  Age: 78 Year
  Sex: Male

DRUGS (6)
  1. OMEPRAZOLE [Suspect]
     Indication: PRODUCT USED FOR UNKNOWN INDICATION
  2. TEMAZEPAM [Suspect]
     Indication: SOMNOLENCE
  3. LORAZEPAM [Suspect]
     Indication: ANXIETY
  4. CLARITIN [Suspect]
     Indication: SINUSITIS
     Dosage: 10 MG;PRN;PO
     Route: 048
  5. METOPROLOL [Suspect]
     Indication: PRODUCT USED FOR UNKNOWN INDICATION
  6. DICLOFENAC [Suspect]
     Indication: PRODUCT USED FOR UNKNOWN INDICATION

REACTIONS (6)
  - GOUT [None]
  - ANGINA PECTORIS [None]
  - CEREBROVASCULAR ACCIDENT [None]
  - DISCOMFORT [None]
  - RHEUMATOID ARTHRITIS [None]
  - OEDEMA PERIPHERAL [None]
